FAERS Safety Report 9675672 (Version 3)
Quarter: 2013Q4

REPORT INFORMATION
  Report Type: Report from Study
  Country: US (occurrence: US)
  Receive Date: 20131107
  Receipt Date: 20131121
  Transmission Date: 20140711
  Serious: Yes (Other)
  Sender: FDA-Public Use
  Company Number: US-ABBVIE-13P-163-1159298-00

PATIENT
  Age: 54 Year
  Sex: Female

DRUGS (3)
  1. HUMIRA [Suspect]
     Indication: PSORIATIC ARTHROPATHY
     Route: 058
     Dates: start: 201212
  2. METHOTREXATE [Suspect]
     Indication: PSORIATIC ARTHROPATHY
  3. METHADONE [Concomitant]
     Indication: PAIN

REACTIONS (13)
  - Sjogren^s syndrome [Not Recovered/Not Resolved]
  - Dental caries [Recovered/Resolved]
  - Anti-SS-A antibody positive [Unknown]
  - Swelling face [Not Recovered/Not Resolved]
  - Headache [Not Recovered/Not Resolved]
  - Dry eye [Not Recovered/Not Resolved]
  - Joint stiffness [Not Recovered/Not Resolved]
  - Arthralgia [Not Recovered/Not Resolved]
  - Drug ineffective [Not Recovered/Not Resolved]
  - Alopecia [Recovered/Resolved]
  - Salivary gland disorder [Recovered/Resolved]
  - Sialoadenitis [Unknown]
  - Sjogren^s syndrome [Unknown]
